FAERS Safety Report 6257676-6 (Version None)
Quarter: 2009Q3

REPORT INFORMATION
  Report Type: 
  Country: None (occurrence: None)
  Receive Date: 20090706
  Receipt Date: 20090622
  Transmission Date: 20100115
  Serious: Yes (Hospitalization)
  Sender: FDA-Public Use
  Company Number: TW-MYLANLABS-2009S1011009

PATIENT
  Age: 81 Year
  Sex: Male
  Weight: 73 kg

DRUGS (6)
  1. PROPOFOL [Suspect]
     Indication: INDUCTION OF ANAESTHESIA
     Route: 042
  2. MIVACURIUM CHLORIDE [Suspect]
     Indication: INDUCTION OF ANAESTHESIA
     Route: 042
  3. NITROUS OXIDE [Suspect]
     Indication: INDUCTION OF ANAESTHESIA
     Route: 055
  4. VECURONIUM BROMIDE [Suspect]
     Indication: MAINTENANCE OF ANAESTHESIA
  5. FENTANYL [Suspect]
     Indication: MAINTENANCE OF ANAESTHESIA
  6. SEVOFLURANE [Suspect]
     Indication: INDUCTION OF ANAESTHESIA
     Route: 055

REACTIONS (1)
  - HEMIPLEGIA [None]
